FAERS Safety Report 14088414 (Version 3)
Quarter: 2018Q2

REPORT INFORMATION
  Report Type: Report from Study
  Country: US (occurrence: US)
  Receive Date: 20171013
  Receipt Date: 20180504
  Transmission Date: 20180711
  Serious: Yes (Hospitalization)
  Sender: FDA-Public Use
  Company Number: US-ACTELION-A-NJ2017-158776

PATIENT
  Age: 68 Year
  Sex: Male
  Weight: 95.24 kg

DRUGS (20)
  1. OPSUMIT [Suspect]
     Active Substance: MACITENTAN
     Indication: PULMONARY ARTERIAL HYPERTENSION
     Dosage: 10 MG, QD
     Route: 048
     Dates: start: 20170823
  2. PRADAXA [Concomitant]
     Active Substance: DABIGATRAN ETEXILATE MESYLATE
     Dosage: 75 MG, QD
  3. COUMADIN [Concomitant]
     Active Substance: WARFARIN SODIUM
  4. ATORVASTATIN [Concomitant]
     Active Substance: ATORVASTATIN
     Dosage: 20 MG, QD
  5. NASONEX [Concomitant]
     Active Substance: MOMETASONE FUROATE
     Dosage: UNK, 2 SPRAYS PER NOSTRIL
  6. SUCRALFATE. [Concomitant]
     Active Substance: SUCRALFATE
     Dosage: UNK, TID
  7. DULCOLAX NOS [Concomitant]
     Active Substance: BISACODYL OR DOCUSATE SODIUM
     Dosage: 100 MG, QD
  8. METFORMIN [Concomitant]
     Active Substance: METFORMIN HYDROCHLORIDE
     Dosage: 50/1000 MG, QD
  9. NEXIUM [Concomitant]
     Active Substance: ESOMEPRAZOLE MAGNESIUM
     Dosage: 40 MG, BID
  10. METAXALONE. [Concomitant]
     Active Substance: METAXALONE
     Dosage: UNK
  11. LASIX [Concomitant]
     Active Substance: FUROSEMIDE
     Dosage: 60 MG, QD
  12. PLAVIX [Concomitant]
     Active Substance: CLOPIDOGREL BISULFATE
     Dosage: 75 MG, QD
  13. MIRAPEX [Concomitant]
     Active Substance: PRAMIPEXOLE DIHYDROCHLORIDE
     Dosage: .5 MG, QD
  14. RANEXA [Concomitant]
     Active Substance: RANOLAZINE
     Dosage: 1000 MG, BID
  15. POTASSIUM [Concomitant]
     Active Substance: POTASSIUM
     Dosage: 20 MG, BID
  16. BACID [Concomitant]
     Active Substance: LACTOBACILLUS ACIDOPHILUS
     Dosage: UNK 2 TABS, QD
  17. ADCIRCA [Concomitant]
     Active Substance: TADALAFIL
     Dosage: 20 MG, QD
  18. HUMALOG [Concomitant]
     Active Substance: INSULIN LISPRO
     Dosage: 75/25 U, 40U AM, 40U PM
  19. OXYCODONE [Concomitant]
     Active Substance: OXYCODONE
     Dosage: 10/325 MG, QID, PRN
  20. PREDNISONE. [Concomitant]
     Active Substance: PREDNISONE

REACTIONS (7)
  - Decreased activity [Unknown]
  - Blood potassium increased [Unknown]
  - Head injury [Unknown]
  - Syncope [Unknown]
  - Dyspnoea [Not Recovered/Not Resolved]
  - Renal failure [Unknown]
  - Therapy non-responder [Unknown]
